FAERS Safety Report 5478770-3 (Version None)
Quarter: 2007Q4

REPORT INFORMATION
  Report Type: 
  Country: None (occurrence: None)
  Receive Date: 20071005
  Receipt Date: 20070927
  Transmission Date: 20080405
  Serious: Yes (Other)
  Sender: FDA-Public Use
  Company Number: US-PFIZER INC-2006140035

PATIENT
  Sex: Female
  Weight: 95.45 kg

DRUGS (23)
  1. LIPITOR [Interacting]
     Indication: HYPERLIPIDAEMIA
  2. HYDROXYCHLOROQUINE SULFATE [Suspect]
     Indication: DERMATOMYOSITIS
  3. CICLOPIROX [Interacting]
     Indication: ONYCHOMYCOSIS
     Route: 061
     Dates: start: 20050821, end: 20060201
  4. PARACETAMOL [Concomitant]
  5. PREVACID [Concomitant]
  6. VICODIN [Concomitant]
  7. AMBIEN [Concomitant]
  8. ERGOCALCIFEROL [Concomitant]
  9. ASCORBIC ACID [Concomitant]
  10. FOLIC ACID [Concomitant]
  11. THIAMINE HCL [Concomitant]
  12. RETINOL [Concomitant]
  13. RIBOFLAVIN TAB [Concomitant]
  14. NICOTINAMIDE [Concomitant]
  15. PANTHENOL [Concomitant]
  16. SKELAXIN [Concomitant]
  17. ESTRADIOL [Concomitant]
  18. AMI-TEX LA [Concomitant]
  19. AZMACORT [Concomitant]
     Dates: start: 20051202
  20. ZYRTEC [Concomitant]
  21. OSELTAMIVIR [Concomitant]
     Dates: start: 20051222
  22. RANITIDINE HCL [Concomitant]
     Dates: start: 20051228
  23. ALLEGRA D 24 HOUR [Concomitant]
     Dates: start: 20051228

REACTIONS (38)
  - ANOREXIA [None]
  - ANTINUCLEAR ANTIBODY INCREASED [None]
  - APHONIA [None]
  - ASPERGILLOSIS [None]
  - ASTHENIA [None]
  - BARRETT'S OESOPHAGUS [None]
  - BRONCHITIS CHRONIC [None]
  - CARDIOLIPIN ANTIBODY [None]
  - CARPAL TUNNEL SYNDROME [None]
  - DERMATOMYOSITIS [None]
  - DIVERTICULUM INTESTINAL [None]
  - DRUG INTERACTION [None]
  - FALL [None]
  - FIBROMYALGIA [None]
  - GASTROINTESTINAL DISORDER [None]
  - HAEMORRHOIDS [None]
  - HEPATIC STEATOSIS [None]
  - HIATUS HERNIA [None]
  - HYPOAESTHESIA [None]
  - INFECTION [None]
  - IRRITABLE BOWEL SYNDROME [None]
  - LARYNGITIS [None]
  - LIVER DISORDER [None]
  - LUNG DISORDER [None]
  - LYMPHADENOPATHY MEDIASTINAL [None]
  - MUSCULOSKELETAL DISORDER [None]
  - NERVE INJURY [None]
  - NODULE [None]
  - PNEUMONIA PRIMARY ATYPICAL [None]
  - POLYP [None]
  - RECTAL POLYP [None]
  - SPINAL COLUMN STENOSIS [None]
  - SPINAL OSTEOARTHRITIS [None]
  - SYNOVITIS [None]
  - TENDONITIS [None]
  - TRIGGER FINGER [None]
  - WEIGHT DECREASED [None]
  - WEIGHT INCREASED [None]
